FAERS Safety Report 9281251 (Version 1)
Quarter: 2013Q2

REPORT INFORMATION
  Report Type: Spontaneous
  Country: US (occurrence: US)
  Receive Date: 20130509
  Receipt Date: 20130509
  Transmission Date: 20140414
  Serious: Yes (Hospitalization)
  Sender: FDA-Public Use
  Company Number: US-ASTRAZENECA-2013SE30598

PATIENT
  Age: 68 Year
  Sex: Female
  Weight: 73.5 kg

DRUGS (2)
  1. SYMBICORT [Suspect]
     Indication: CHRONIC OBSTRUCTIVE PULMONARY DISEASE
     Dosage: 320 MCG  160/4.5 BID
     Route: 055
     Dates: end: 20130426
  2. SYMBICORT [Suspect]
     Indication: CHRONIC OBSTRUCTIVE PULMONARY DISEASE
     Dosage: 320 MCG  BID
     Route: 055
     Dates: start: 20130430, end: 20130430

REACTIONS (8)
  - Chronic obstructive pulmonary disease [Unknown]
  - Alopecia [Unknown]
  - Muscle spasms [Unknown]
  - Candida infection [Unknown]
  - Weight decreased [Unknown]
  - Weight loss poor [Unknown]
  - Expired drug administered [Unknown]
  - Intentional drug misuse [Unknown]
